FAERS Safety Report 12228530 (Version 2)
Quarter: 2016Q2

REPORT INFORMATION
  Report Type: Spontaneous
  Country: US (occurrence: US)
  Receive Date: 20160401
  Receipt Date: 20160429
  Transmission Date: 20160815
  Serious: No
  Sender: FDA-Public Use
  Company Number: US-PFIZER INC-2016153516

PATIENT
  Age: 78 Year
  Sex: Female

DRUGS (13)
  1. DILANTIN [Suspect]
     Active Substance: PHENYTOIN
     Dosage: UNK
  2. DESYREL [Suspect]
     Active Substance: TRAZODONE HYDROCHLORIDE
     Dosage: UNK
  3. WELLBUTRIN [Suspect]
     Active Substance: BUPROPION HYDROCHLORIDE
     Dosage: UNK
  4. DILAUDID [Suspect]
     Active Substance: HYDROMORPHONE HYDROCHLORIDE
     Dosage: UNK
  5. LIPITOR [Suspect]
     Active Substance: ATORVASTATIN CALCIUM
     Dosage: UNK
  6. ZOCOR [Suspect]
     Active Substance: SIMVASTATIN
     Dosage: UNK
  7. PROZAC [Suspect]
     Active Substance: FLUOXETINE HYDROCHLORIDE
     Dosage: UNK
  8. IODINE. [Suspect]
     Active Substance: IODINE
     Dosage: UNK
  9. KEFLEX [Suspect]
     Active Substance: CEPHALEXIN
     Dosage: UNK
  10. DEMEROL [Suspect]
     Active Substance: MEPERIDINE HYDROCHLORIDE
     Dosage: UNK
  11. LOPID [Suspect]
     Active Substance: GEMFIBROZIL
     Dosage: UNK
  12. PRAVACHOL [Suspect]
     Active Substance: PRAVASTATIN SODIUM
     Dosage: UNK
  13. SULFUR. [Suspect]
     Active Substance: SULFUR
     Dosage: UNK

REACTIONS (1)
  - Drug hypersensitivity [Unknown]

NARRATIVE: CASE EVENT DATE: 20080314
